FAERS Safety Report 21575980 (Version 7)
Quarter: 2022Q4

REPORT INFORMATION
  Report Type: Spontaneous
  Country: US (occurrence: US)
  Receive Date: 20221110
  Receipt Date: 20221228
  Transmission Date: 20230113
  Serious: No
  Sender: FDA-Public Use
  Company Number: US-PFIZER INC-202201269512

PATIENT
  Age: 65 Year
  Sex: Female
  Weight: 120.2 kg

DRUGS (2)
  1. GENOTROPIN [Suspect]
     Active Substance: SOMATROPIN
     Indication: Growth hormone deficiency
     Dosage: 0.6 MG, DAILY (3 CLICKS)
     Dates: start: 2008
  2. GENOTROPIN [Suspect]
     Active Substance: SOMATROPIN
     Indication: Hypopituitarism
     Dosage: 0.6 MG, 1X/DAY
     Route: 058

REACTIONS (5)
  - Device power source issue [Not Recovered/Not Resolved]
  - Product administration error [Not Recovered/Not Resolved]
  - Poor quality device used [Unknown]
  - Device defective [Unknown]
  - Device malfunction [Unknown]
